FAERS Safety Report 21074093 (Version 1)
Quarter: 2022Q3

REPORT INFORMATION
  Report Type: Spontaneous
  Country: JP (occurrence: JP)
  Receive Date: 20220713
  Receipt Date: 20220713
  Transmission Date: 20221027
  Serious: Yes (Other)
  Sender: FDA-Public Use
  Company Number: JP-SUN PHARMACEUTICAL INDUSTRIES LTD-2022R1-343977

PATIENT
  Age: 79 Year
  Sex: Female

DRUGS (2)
  1. CISPLATIN [Suspect]
     Active Substance: CISPLATIN
     Indication: Endometrial adenocarcinoma
     Dosage: UNK,50 MG/M2 AT 3 WEEK INTERVALS
     Route: 065
  2. DOXORUBICIN [Suspect]
     Active Substance: DOXORUBICIN
     Indication: Endometrial adenocarcinoma
     Dosage: UNK,60 MG/M2 AT 3-WEEK INTERVALS
     Route: 065

REACTIONS (2)
  - Disease progression [Unknown]
  - Renal impairment [Unknown]
